FAERS Safety Report 5198138-7 (Version None)
Quarter: 2006Q4

REPORT INFORMATION
  Report Type: 
  Country: None (occurrence: None)
  Receive Date: 20061227
  Receipt Date: 20061214
  Transmission Date: 20070319
  Serious: Yes (Other)
  Sender: FDA-Public Use
  Company Number: 2006153572

PATIENT
  Sex: Female
  Weight: 79.3795 kg

DRUGS (2)
  1. LYRICA [Suspect]
     Indication: PAIN
     Dates: start: 20060808, end: 20061101
  2. MORPHINE [Suspect]
     Indication: PAIN

REACTIONS (14)
  - CONFUSIONAL STATE [None]
  - DECREASED ACTIVITY [None]
  - DIARRHOEA [None]
  - DIZZINESS [None]
  - DRUG INEFFECTIVE [None]
  - EUPHORIC MOOD [None]
  - FATIGUE [None]
  - GAIT DISTURBANCE [None]
  - IMPAIRED DRIVING ABILITY [None]
  - MIGRAINE [None]
  - OEDEMA PERIPHERAL [None]
  - PERFORMANCE STATUS DECREASED [None]
  - URTICARIA [None]
  - WEIGHT INCREASED [None]
